FAERS Safety Report 24799896 (Version 1)
Quarter: 2024Q4

REPORT INFORMATION
  Report Type: Spontaneous
  Country: US (occurrence: None)
  Receive Date: 20241231
  Receipt Date: 20241231
  Transmission Date: 20250114
  Serious: Yes (Hospitalization, Congenital Anomaly)
  Sender: Public
  Company Number: None

PATIENT
  Age: 43 Year
  Sex: Female
  Weight: 85.5 kg

DRUGS (6)
  1. INVEGA SUSTENNA [Suspect]
     Active Substance: PALIPERIDONE PALMITATE
     Indication: Schizoaffective disorder bipolar type
     Dosage: OTHER QUANTITY : 1 INJECTION(S);?OTHER FREQUENCY : MONRH;?
     Route: 030
     Dates: start: 20160810, end: 20191023
  2. OZEMPIC [Concomitant]
     Active Substance: SEMAGLUTIDE
  3. GABAPENTIN [Concomitant]
     Active Substance: GABAPENTIN
  4. diclofinac [Concomitant]
  5. VITAMIN D [Concomitant]
     Active Substance: VITAMIN D NOS
  6. TYLENOL [Concomitant]
     Active Substance: ACETAMINOPHEN

REACTIONS (3)
  - Pituitary tumour benign [None]
  - Weight increased [None]
  - Nonspecific reaction [None]

NARRATIVE: CASE EVENT DATE: 20241201
